FAERS Safety Report 5578068-9 (Version None)
Quarter: 2007Q4

REPORT INFORMATION
  Report Type: 
  Country: None (occurrence: None)
  Receive Date: 20071227
  Receipt Date: 20071219
  Transmission Date: 20080405
  Serious: Yes (Death, Hospitalization)
  Sender: FDA-Public Use
  Company Number: 083-C5013-0712004

PATIENT
  Age: 80 Year
  Sex: Male
  Weight: 53 kg

DRUGS (7)
  1. CC-5013 (LENALIDOMIDE) (CAPSULES) [Suspect]
     Indication: MULTIPLE MYELOMA
     Dosage: 25 MG, DAILY, ORAL
     Route: 048
     Dates: start: 20071113, end: 20071210
  2. DILTIAZEM [Concomitant]
  3. ASPIRIN [Concomitant]
  4. OMEPRAZOLE [Concomitant]
  5. RAMIPRIL [Concomitant]
  6. TRAMADOL HCL [Concomitant]
  7. FENTANYL (FENTANYL)(POULTICE OR PATCH) [Concomitant]

REACTIONS (4)
  - HYPOTENSION [None]
  - MYOCARDIAL INFARCTION [None]
  - NEUROPATHY [None]
  - SHOCK [None]
